FAERS Safety Report 7686666-1 (Version None)
Quarter: 2011Q3

REPORT INFORMATION
  Report Type: 
  Country: None (occurrence: None)
  Receive Date: 20110816
  Receipt Date: 20110720
  Transmission Date: 20111222
  Serious: No
  Sender: FDA-Public Use
  Company Number: US-BAYER-2011-058795

PATIENT
  Age: 49 Year
  Sex: Female

DRUGS (3)
  1. BETASERON [Suspect]
     Indication: MULTIPLE SCLEROSIS
     Dosage: 2 MIU, QOD
     Route: 058
     Dates: start: 20110622
  2. BETASERON [Suspect]
     Dosage: 8 MIU, QOD
     Route: 058
  3. BETASERON [Suspect]
     Dosage: 4 MIU, QOD
     Route: 058

REACTIONS (3)
  - HEADACHE [None]
  - DEPRESSED MOOD [None]
  - DIZZINESS [None]
